FAERS Safety Report 25192780 (Version 2)
Quarter: 2025Q2

REPORT INFORMATION
  Report Type: Spontaneous
  Country: US (occurrence: US)
  Receive Date: 20250414
  Receipt Date: 20250428
  Transmission Date: 20250716
  Serious: Yes (Hospitalization)
  Sender: LUPIN
  Company Number: US-LUPIN PHARMACEUTICALS INC.-2025-03109

PATIENT
  Age: 70 Year
  Sex: Female

DRUGS (10)
  1. LINEZOLID [Suspect]
     Active Substance: LINEZOLID
     Indication: Enterococcal bacteraemia
     Route: 065
  2. LINEZOLID [Suspect]
     Active Substance: LINEZOLID
     Route: 065
  3. PROPOFOL [Suspect]
     Active Substance: PROPOFOL
     Indication: Sedative therapy
     Route: 065
  4. DEXMEDETOMIDINE [Suspect]
     Active Substance: DEXMEDETOMIDINE
     Indication: Sedative therapy
     Route: 065
  5. MYCOPHENOLIC ACID [Suspect]
     Active Substance: MYCOPHENOLIC ACID
     Indication: Immunosuppressant drug therapy
     Route: 065
  6. CYCLOSPORINE [Suspect]
     Active Substance: CYCLOSPORINE
     Indication: Immunosuppressant drug therapy
     Route: 065
  7. HALOPERIDOL [Concomitant]
     Active Substance: HALOPERIDOL
     Indication: Agitation
     Route: 065
  8. HALOPERIDOL [Concomitant]
     Active Substance: HALOPERIDOL
     Indication: Anxiety
  9. QUETIAPINE [Concomitant]
     Active Substance: QUETIAPINE
     Indication: Agitation
  10. QUETIAPINE [Concomitant]
     Active Substance: QUETIAPINE
     Indication: Anxiety

REACTIONS (1)
  - Myoclonus [Recovered/Resolved]
